FAERS Safety Report 4487861-5 (Version None)
Quarter: 2004Q4

REPORT INFORMATION
  Report Type: 
  Country: None (occurrence: None)
  Receive Date: 20041027
  Receipt Date: 20041027
  Transmission Date: 20050328
  Serious: Yes (Other)
  Sender: FDA-Public Use
  Company Number: None

PATIENT
  Age: 21 Year
  Sex: Female

DRUGS (1)
  1. NICOTINAMIDE TABS [Suspect]
     Indication: ACNE
     Dosage: BID PO
     Route: 048
     Dates: start: 20030501, end: 20040501

REACTIONS (3)
  - BLOOD GLUCOSE INCREASED [None]
  - LIVER FUNCTION TEST ABNORMAL [None]
  - WHITE BLOOD CELL COUNT INCREASED [None]
